FAERS Safety Report 6936205-5 (Version None)
Quarter: 2010Q3

REPORT INFORMATION
  Report Type: 
  Country: None (occurrence: None)
  Receive Date: 20100823
  Receipt Date: 20100812
  Transmission Date: 20110219
  Serious: Yes (Hospitalization)
  Sender: FDA-Public Use
  Company Number: FR-PFIZER INC-2010101823

PATIENT
  Age: 35 Year
  Sex: Female

DRUGS (3)
  1. TRIFLUCAN [Suspect]
     Indication: FUNGAL INFECTION
     Dosage: 400 MG, 1X/DAY
     Route: 048
     Dates: start: 20090519, end: 20090610
  2. ACETAMINOPHEN [Suspect]
     Indication: PYREXIA
     Dosage: UNK
     Route: 048
  3. GYNO-PEVARYL [Suspect]
     Indication: FUNGAL INFECTION
     Dosage: 1 DF, 3X/DAY
     Route: 061
     Dates: start: 20090613, end: 20090613

REACTIONS (1)
  - DRUG RASH WITH EOSINOPHILIA AND SYSTEMIC SYMPTOMS [None]
